FAERS Safety Report 24250317 (Version 2)
Quarter: 2024Q3

REPORT INFORMATION
  Report Type: Spontaneous
  Country: DE (occurrence: DE)
  Receive Date: 20240826
  Receipt Date: 20240903
  Transmission Date: 20241017
  Serious: Yes (Death)
  Sender: BAYER
  Company Number: DE-BAYER-2024A120813

PATIENT
  Age: 84 Year

DRUGS (1)
  1. ADEMPAS [Suspect]
     Active Substance: RIOCIGUAT
     Dosage: UNK

REACTIONS (1)
  - Death [Fatal]
